FAERS Safety Report 19959305 (Version 1)
Quarter: 2021Q4

REPORT INFORMATION
  Report Type: Other
  Country: CA (occurrence: CA)
  Receive Date: 20211015
  Receipt Date: 20211015
  Transmission Date: 20220303
  Serious: Yes (Hospitalization, Other)
  Sender: FDA-Public Use
  Company Number: CA-PFIZER INC-202101333281

PATIENT
  Age: 16 Year
  Sex: Male

DRUGS (12)
  1. ALPRAZOLAM [Suspect]
     Active Substance: ALPRAZOLAM
     Dosage: 4 MG, 1X/DAY
     Route: 065
  2. ALPRAZOLAM [Suspect]
     Active Substance: ALPRAZOLAM
     Dosage: 8 MG, 1X/DAY
     Route: 065
  3. AMPHETAMINE [Suspect]
     Active Substance: AMPHETAMINE
     Route: 065
  4. CAFFEINE [Suspect]
     Active Substance: CAFFEINE
     Route: 065
  5. CANNABIS SATIVA FLOWERING TOP [Suspect]
     Active Substance: CANNABIS SATIVA FLOWERING TOP
     Dosage: 5 G, WEEKLY
     Route: 065
  6. COCAINE [Suspect]
     Active Substance: COCAINE
     Route: 065
  7. CODEINE [Suspect]
     Active Substance: CODEINE
     Route: 065
  8. MIDOMAFETAMINE [Suspect]
     Active Substance: MIDOMAFETAMINE
     Dosage: UNK, 1X/DAY
     Route: 065
  9. NICOTINE [Suspect]
     Active Substance: NICOTINE
     Dosage: UNK, 1X/DAY
     Route: 065
  10. PSILOCYBINE [Suspect]
     Active Substance: PSILOCYBINE
     Route: 065
  11. LISDEXAMFETAMINE DIMESYLATE [Concomitant]
     Active Substance: LISDEXAMFETAMINE DIMESYLATE
     Dosage: 60 MG, 1X/DAY
     Route: 065
  12. SERTRALINE [Concomitant]
     Active Substance: SERTRALINE HYDROCHLORIDE
     Dosage: 50 MG, 1X/DAY
     Route: 065

REACTIONS (6)
  - Drug dependence [Unknown]
  - Drug tolerance increased [Unknown]
  - Drug use disorder [Unknown]
  - Insomnia [Unknown]
  - Irritability [Unknown]
  - Withdrawal syndrome [Unknown]
